FAERS Safety Report 19630914 (Version 3)
Quarter: 2021Q4

REPORT INFORMATION
  Report Type: Report from Study
  Country: MX (occurrence: MX)
  Receive Date: 20210729
  Receipt Date: 20211103
  Transmission Date: 20220303
  Serious: Yes (Death, Other)
  Sender: FDA-Public Use
  Company Number: MX-UCBSA-2021035399

PATIENT
  Age: 90 Year
  Sex: Female
  Weight: 40 kg

DRUGS (3)
  1. ROTIGOTINE [Suspect]
     Active Substance: ROTIGOTINE
     Indication: Parkinson^s disease
     Dosage: 6 MILLIGRAM, ONCE DAILY (QD)
  2. ROTIGOTINE [Suspect]
     Active Substance: ROTIGOTINE
     Dosage: 8 MILLIGRAM, ONCE DAILY (QD)
  3. ROTIGOTINE [Suspect]
     Active Substance: ROTIGOTINE
     Dosage: 1 PATCH EVERY 48 HOURS
     Route: 062

REACTIONS (5)
  - Death [Fatal]
  - Application site erythema [Unknown]
  - Parkinson^s disease [Unknown]
  - Application site pruritus [Unknown]
  - Product use issue [Unknown]

NARRATIVE: CASE EVENT DATE: 20210817
